FAERS Safety Report 10074950 (Version 1)
Quarter: 2014Q2

REPORT INFORMATION
  Report Type: Spontaneous
  Country: US (occurrence: US)
  Receive Date: 20140414
  Receipt Date: 20140414
  Transmission Date: 20141212
  Serious: No
  Sender: FDA-Public Use
  Company Number: US-BIOGENIDEC-2014BI024865

PATIENT
  Age: 63 Year
  Sex: Female
  Weight: 63 kg

DRUGS (14)
  1. TECFIDERA [Suspect]
     Indication: MULTIPLE SCLEROSIS
     Dates: start: 201402
  2. TECFIDERA [Suspect]
     Indication: MULTIPLE SCLEROSIS
     Route: 048
     Dates: start: 201403
  3. TECFIDERA [Suspect]
     Indication: MULTIPLE SCLEROSIS
     Route: 048
  4. TECFIDERA [Suspect]
     Indication: MULTIPLE SCLEROSIS
     Route: 048
     Dates: start: 20140311, end: 20140326
  5. TECFIDERA [Suspect]
     Indication: MULTIPLE SCLEROSIS
     Dates: start: 20140327
  6. TECFIDERA [Suspect]
     Indication: MULTIPLE SCLEROSIS
     Route: 048
     Dates: start: 201403
  7. KLONOPIN [Concomitant]
  8. AMBIEN [Concomitant]
  9. LOSARTAN POTASSIUM [Concomitant]
  10. LIPITOR [Concomitant]
  11. NEURONTIN [Concomitant]
  12. ASPIRIN [Concomitant]
  13. SEROQUEL [Concomitant]
  14. VIIBRYD [Concomitant]

REACTIONS (14)
  - Gastric disorder [Recovered/Resolved]
  - Depression [Not Recovered/Not Resolved]
  - Off label use [Unknown]
  - Prescribed underdose [Recovered/Resolved]
  - Anxiety [Not Recovered/Not Resolved]
  - Nightmare [Not Recovered/Not Resolved]
  - Tremor [Not Recovered/Not Resolved]
  - Nervousness [Not Recovered/Not Resolved]
  - Panic attack [Recovered/Resolved]
  - Decreased appetite [Recovered/Resolved]
  - Flushing [Recovered/Resolved]
  - Abdominal discomfort [Unknown]
  - Erythema [Unknown]
  - Diarrhoea [Recovered/Resolved]
